FAERS Safety Report 18044356 (Version 2)
Quarter: 2020Q3

REPORT INFORMATION
  Report Type: Spontaneous
  Country: CN (occurrence: CN)
  Receive Date: 20200720
  Receipt Date: 20200803
  Transmission Date: 20201103
  Serious: Yes (Death, Hospitalization, Disabling)
  Sender: FDA-Public Use
  Company Number: CN-SA-2020SA182781

PATIENT

DRUGS (2)
  1. ELOXATIN [Suspect]
     Active Substance: OXALIPLATIN
     Indication: GASTRIC CANCER
     Dosage: 200 MG, QD
     Route: 041
     Dates: start: 20200312, end: 20200528
  2. GIMERACIL;OTERACIL POTASSIUM;TEGAFUR [Concomitant]
     Active Substance: GIMERACIL\OTERACIL\TEGAFUR
     Indication: GASTRIC CANCER
     Dosage: 60 MG, BID
     Route: 048
     Dates: start: 20200312, end: 20200611

REACTIONS (1)
  - Cystitis [Fatal]

NARRATIVE: CASE EVENT DATE: 20200528
